FAERS Safety Report 12993937 (Version 2)
Quarter: 2017Q2

REPORT INFORMATION
  Report Type: Spontaneous
  Country: US (occurrence: US)
  Receive Date: 20161202
  Receipt Date: 20170627
  Transmission Date: 20170830
  Serious: Yes (Other)
  Sender: FDA-Public Use
  Company Number: US-PFIZER INC-2016554437

PATIENT
  Age: 72 Year
  Sex: Female
  Weight: 76.2 kg

DRUGS (2)
  1. IBRANCE [Suspect]
     Active Substance: PALBOCICLIB
     Indication: NEOPLASM MALIGNANT
     Dosage: 100 MG, CYCLIC (100MG ONE TABLET BY MOUTH FOR 21 DAYS THEN OFF FOR 7 DAYS  )
  2. FEMARA [Concomitant]
     Active Substance: LETROZOLE
     Indication: NEOPLASM MALIGNANT
     Dosage: 2.5 MG, 1X/DAY

REACTIONS (9)
  - Malignant neoplasm of eye [Unknown]
  - Vomiting [Unknown]
  - Drug dose omission [Unknown]
  - Pain [Not Recovered/Not Resolved]
  - Second primary malignancy [Unknown]
  - Fluid retention [Not Recovered/Not Resolved]
  - Pruritus [Unknown]
  - Skin mass [Not Recovered/Not Resolved]
  - Neuropathy peripheral [Unknown]
